FAERS Safety Report 13497978 (Version 3)
Quarter: 2017Q2

REPORT INFORMATION
  Report Type: Spontaneous
  Country: JP (occurrence: JP)
  Receive Date: 20170428
  Receipt Date: 20170606
  Transmission Date: 20170830
  Serious: Yes (Death, Other)
  Sender: FDA-Public Use
  Company Number: JP-BRISTOL-MYERS SQUIBB COMPANY-BMS-2017-036188

PATIENT
  Age: 42 Year
  Sex: Female

DRUGS (2)
  1. IRRIBOW [Concomitant]
     Active Substance: RAMOSETRON HYDROCHLORIDE
     Indication: CONSTIPATION
     Dosage: UNK
     Route: 065
  2. ABILIFY [Suspect]
     Active Substance: ARIPIPRAZOLE
     Indication: BIPOLAR DISORDER
     Dosage: 24 MG, UNK
     Route: 048

REACTIONS (3)
  - Aggression [Unknown]
  - Pulmonary embolism [Fatal]
  - Constipation [Unknown]

NARRATIVE: CASE EVENT DATE: 20170415
